FAERS Safety Report 12726455 (Version 10)
Quarter: 2020Q3

REPORT INFORMATION
  Report Type: Report from Study
  Country: FR (occurrence: FR)
  Receive Date: 20160908
  Receipt Date: 20170801
  Transmission Date: 20201105
  Serious: Yes (Life-Threatening, Hospitalization)
  Sender: FDA-Public Use
  Company Number: FR-ROCHE-1823183

PATIENT
  Age: 72 Year
  Sex: Male
  Weight: 77 kg

DRUGS (31)
  1. IMODIUM [Concomitant]
     Active Substance: LOPERAMIDE HYDROCHLORIDE
     Indication: DIARRHOEA
     Route: 048
     Dates: start: 20160808, end: 20160809
  2. ALLOPURINOL. [Concomitant]
     Active Substance: ALLOPURINOL
     Indication: HYPERURICAEMIA
     Route: 048
     Dates: start: 20160801
  3. PREVISCAN (FRANCE) [Concomitant]
     Active Substance: FLUINDIONE
     Indication: THROMBOSIS PROPHYLAXIS
     Route: 048
     Dates: end: 20160808
  4. METOPROLOL. [Concomitant]
     Active Substance: METOPROLOL
     Indication: HYPERTENSION
     Dosage: UNKNOWN
     Route: 048
  5. OFLOCET [Concomitant]
     Active Substance: OFLOXACIN
     Indication: BACTERIAL INFECTION
     Dosage: UNKNOWN
     Route: 065
     Dates: start: 20160819, end: 201609
  6. ATACAND [Concomitant]
     Active Substance: CANDESARTAN CILEXETIL
     Indication: HYPERTENSION
     Dosage: UNKNOWN
     Route: 065
     Dates: start: 20160910
  7. SOLUDACTONE [Concomitant]
     Active Substance: CANRENOATE POTASSIUM\TROMETHAMINE
     Indication: CARDIAC FAILURE
     Dosage: UNKNOWN
     Route: 065
     Dates: start: 20160907, end: 20160909
  8. LANSOPRAZOLE. [Concomitant]
     Active Substance: LANSOPRAZOLE
     Indication: GASTRITIS
     Route: 048
     Dates: start: 20160826, end: 20160830
  9. IDASANUTLIN. [Suspect]
     Active Substance: IDASANUTLIN
     Indication: ACUTE MYELOID LEUKAEMIA
     Dosage: DATE OF MOST RECENT DOSE PRIOR TO THE EVENT ONSET: 12/AUG/2016 OF 400 MG
     Route: 048
     Dates: start: 20160808
  10. COTAREG [Concomitant]
     Active Substance: HYDROCHLOROTHIAZIDE\VALSARTAN
     Indication: HYPERTENSION
  11. SELOKEN [Concomitant]
     Active Substance: METOPROLOL
     Indication: HYPERTENSION
     Route: 048
  12. ALDACTONE [Concomitant]
     Active Substance: SPIRONOLACTONE
     Indication: CARDIAC FAILURE
     Dosage: UNKNOWN
     Route: 065
     Dates: start: 20160909, end: 20160912
  13. AMPHOTERICINE B [Concomitant]
     Active Substance: AMPHOTERICIN B
     Indication: MOUTH ULCERATION
     Dosage: 1 TBSP (TABLESPOON)
     Route: 061
     Dates: start: 20160901, end: 20160901
  14. CORDARONE [Concomitant]
     Active Substance: AMIODARONE HYDROCHLORIDE
     Indication: ATRIAL FIBRILLATION
     Route: 048
     Dates: start: 20161012
  15. LASILIX [Concomitant]
     Active Substance: FUROSEMIDE
     Route: 048
     Dates: start: 20160905, end: 20160929
  16. INEXIUM [Concomitant]
     Active Substance: ESOMEPRAZOLE
     Route: 048
     Dates: start: 20160815
  17. COTAREG [Concomitant]
     Active Substance: HYDROCHLOROTHIAZIDE\VALSARTAN
     Indication: HYPERTENSION
     Route: 048
  18. PREVISCAN (FRANCE) [Concomitant]
     Active Substance: FLUINDIONE
     Route: 048
  19. SELOKEN [Concomitant]
     Active Substance: METOPROLOL
     Indication: HYPERTENSION
  20. BISOPROLOL [Concomitant]
     Active Substance: BISOPROLOL
     Indication: HYPERTENSION
     Route: 048
     Dates: start: 20160915, end: 20161004
  21. ESIDREX [Concomitant]
     Active Substance: HYDROCHLOROTHIAZIDE
     Indication: CARDIAC FAILURE
     Route: 048
     Dates: start: 20160826, end: 20160830
  22. ZELITREX [Concomitant]
     Active Substance: VALACYCLOVIR HYDROCHLORIDE
     Indication: VIRAL INFECTION
     Route: 048
     Dates: start: 20160815
  23. KARDEGIC [Concomitant]
     Active Substance: ASPIRIN DL-LYSINE
     Indication: THROMBOSIS PROPHYLAXIS
     Route: 048
  24. AUGMENTIN [Concomitant]
     Active Substance: AMOXICILLIN\CLAVULANATE POTASSIUM
     Indication: BACTERIAL INFECTION
     Dosage: UNKNOWN
     Route: 048
     Dates: start: 20160819, end: 20160820
  25. KEPPRA [Concomitant]
     Active Substance: LEVETIRACETAM
     Indication: SEIZURE
     Route: 048
     Dates: start: 20161003, end: 20161003
  26. HYDROCORTISONE. [Concomitant]
     Active Substance: HYDROCORTISONE
     Indication: PYREXIA
     Route: 048
     Dates: start: 20160902
  27. WELLVONE [Concomitant]
     Active Substance: ATOVAQUONE
     Indication: BACTERIAL INFECTION
     Dosage: 1 TBSP (TABLESPOON)
     Route: 048
     Dates: start: 20160815, end: 20160829
  28. VENETOCLAX. [Suspect]
     Active Substance: VENETOCLAX
     Indication: ACUTE MYELOID LEUKAEMIA
     Dosage: DATE OF MOST RECENT DOSE PRIOR TO THE ONSET OF FEBRILE NEUTROPENIA: 25/AUG/2016 OF 400 MG?DATE OF MO
     Route: 048
     Dates: start: 20160808
  29. PHOCYTAN [Concomitant]
     Active Substance: .ALPHA.-GLUCOSE-1-PHOSPHATE
     Indication: HYPOPHOSPHATAEMIA
     Route: 042
     Dates: start: 20161008, end: 20161010
  30. CALCIDIA [Concomitant]
     Active Substance: CALCIUM CARBONATE
     Indication: HYPOCALCAEMIA
     Route: 048
     Dates: start: 20161012
  31. LASILIX [Concomitant]
     Active Substance: FUROSEMIDE
     Indication: CARDIAC FAILURE
     Route: 042
     Dates: start: 20160926, end: 20160929

REACTIONS (4)
  - Hyperbilirubinaemia [Recovering/Resolving]
  - Escherichia sepsis [Recovered/Resolved]
  - Febrile neutropenia [Recovered/Resolved]
  - Pneumonia [Recovering/Resolving]

NARRATIVE: CASE EVENT DATE: 20160825
